FAERS Safety Report 20323243 (Version 1)
Quarter: 2022Q1

REPORT INFORMATION
  Report Type: Spontaneous
  Country: US (occurrence: US)
  Receive Date: 20220111
  Receipt Date: 20220111
  Transmission Date: 20220423
  Serious: No
  Sender: FDA-Public Use
  Company Number: US-NOVOPROD-847908

PATIENT
  Sex: Female

DRUGS (2)
  1. RYBELSUS [Suspect]
     Active Substance: SEMAGLUTIDE
     Indication: Weight control
     Dosage: 7 MG
     Route: 048
  2. RYBELSUS [Suspect]
     Active Substance: SEMAGLUTIDE
     Indication: Glucose tolerance impaired
     Dosage: 3 MG FOR 1 MONTH
     Route: 048

REACTIONS (6)
  - Malaise [Unknown]
  - Hyperhidrosis [Unknown]
  - Hypophagia [Unknown]
  - Nausea [Unknown]
  - Dyspepsia [Unknown]
  - Off label use [Unknown]
